FAERS Safety Report 4338267-0 (Version None)
Quarter: 2004Q2

REPORT INFORMATION
  Report Type: 
  Country: None (occurrence: None)
  Receive Date: 20040407
  Receipt Date: 20040324
  Transmission Date: 20050107
  Serious: Yes (Death, Hospitalization)
  Sender: FDA-Public Use
  Company Number: DE-JNJFOC-20040203289

PATIENT
  Age: 50 Year
  Sex: Male

DRUGS (1)
  1. RISPERDAL [Suspect]
     Indication: PSYCHOTIC DISORDER

REACTIONS (15)
  - ABDOMINAL STRANGULATED HERNIA [None]
  - BRAIN DEATH [None]
  - CLOSTRIDIUM COLITIS [None]
  - GALLBLADDER OPERATION [None]
  - GENERAL PHYSICAL HEALTH DETERIORATION [None]
  - HYPOTENSION [None]
  - HYPOTONIA [None]
  - MENINGITIS STAPHYLOCOCCAL [None]
  - MYDRIASIS [None]
  - POST PROCEDURAL COMPLICATION [None]
  - PULMONARY OEDEMA [None]
  - SMALL INTESTINE GANGRENE [None]
  - STAPHYLOCOCCAL INFECTION [None]
  - STAPHYLOCOCCAL SEPSIS [None]
  - UMBILICAL HERNIA [None]
